FAERS Safety Report 6888807 (Version 2)
Quarter: 2013Q2

REPORT INFORMATION
  Report Type: Spontaneous
  Country: US (occurrence: US)
  Receive Date: 20090122
  Receipt Date: 20130516
  Transmission Date: 20140414
  Serious: Yes (Other)
  Sender: FDA-Public Use
  Company Number: US-BAYER-200841511NA

PATIENT
  Age: 19 Year
  Sex: Female

DRUGS (1)
  1. YAZ [Suspect]
     Indication: CONTRACEPTION
     Dosage: 1 DF (DAILY DOSE), QD, ORAL
     Route: 048
     Dates: start: 2006

REACTIONS (2)
  - Coital bleeding [Unknown]
  - Genital haemorrhage [None]
